FAERS Safety Report 5877080-X (Version None)
Quarter: 2008Q3

REPORT INFORMATION
  Report Type: 
  Country: None (occurrence: None)
  Receive Date: 20080910
  Receipt Date: 20080906
  Transmission Date: 20090109
  Serious: Yes (Death, Other)
  Sender: FDA-Public Use
  Company Number: PHHY2008ZA20218

PATIENT
  Sex: Male

DRUGS (4)
  1. CLOZARIL [Suspect]
     Dosage: UNK
  2. CLOZAPINE [Suspect]
     Indication: SCHIZOPHRENIA
     Dosage: 175 MG MORNING, 550 MG AT NIGHT
  3. EPILIM [Concomitant]
     Indication: EPILEPSY
     Dosage: 400 MG MORNING, 600 MG NIGHT
  4. OMEPRAZOLE [Concomitant]
     Dosage: 20 MG/DAY

REACTIONS (21)
  - ARRHYTHMIA [None]
  - ARTERIOSCLEROSIS CORONARY ARTERY [None]
  - CATARACT OPERATION [None]
  - CIRCULATORY COLLAPSE [None]
  - CONSTIPATION [None]
  - CORONARY ARTERY INSUFFICIENCY [None]
  - CORONARY ARTERY STENOSIS [None]
  - DECREASED APPETITE [None]
  - GASTRITIS [None]
  - INSOMNIA [None]
  - MALAISE [None]
  - PULMONARY CONGESTION [None]
  - PULMONARY OEDEMA [None]
  - REGURGITATION [None]
  - RENAL LIPOMATOSIS [None]
  - SALIVARY HYPERSECRETION [None]
  - SOMNOLENCE [None]
  - SPLEEN CONGESTION [None]
  - SPLENOMEGALY [None]
  - TREMOR [None]
  - VOMITING [None]
